FAERS Safety Report 7538937-7 (Version None)
Quarter: 2011Q2

REPORT INFORMATION
  Report Type: 
  Country: None (occurrence: None)
  Receive Date: 20110524
  Receipt Date: 20110405
  Transmission Date: 20111010
  Serious: No
  Sender: FDA-Public Use
  Company Number: 030768

PATIENT
  Sex: Female
  Weight: 67.1 kg

DRUGS (11)
  1. CIMZIA [Suspect]
     Indication: RHEUMATOID ARTHRITIS
     Dosage: (SUBCUTANEOUS), (SUBCUTANEOUS)
     Route: 058
     Dates: start: 20101201
  2. CIMZIA [Suspect]
     Indication: CROHN'S DISEASE
     Dosage: (SUBCUTANEOUS), (SUBCUTANEOUS)
     Route: 058
     Dates: start: 20101201
  3. CIMZIA [Suspect]
     Indication: RHEUMATOID ARTHRITIS
     Dosage: (SUBCUTANEOUS), (SUBCUTANEOUS)
     Route: 058
     Dates: start: 20100316
  4. CIMZIA [Suspect]
     Indication: CROHN'S DISEASE
     Dosage: (SUBCUTANEOUS), (SUBCUTANEOUS)
     Route: 058
     Dates: start: 20100316
  5. SYNTHROID [Concomitant]
  6. LIPITOR [Concomitant]
  7. ESTRADIOL [Concomitant]
  8. PROMETRIUM [Concomitant]
  9. TOPROL-XL [Concomitant]
  10. SINGULAIR [Concomitant]
  11. CELEXA [Concomitant]

REACTIONS (3)
  - PYREXIA [None]
  - FOOT FRACTURE [None]
  - RESPIRATORY TRACT INFECTION [None]
